FAERS Safety Report 13789902 (Version 6)
Quarter: 2018Q1

REPORT INFORMATION
  Report Type: Spontaneous
  Country: US (occurrence: US)
  Receive Date: 20170725
  Receipt Date: 20180110
  Transmission Date: 20180508
  Serious: No
  Sender: FDA-Public Use
  Company Number: US-PFIZER INC-2017318463

PATIENT
  Age: 53 Year
  Sex: Female
  Weight: 82.1 kg

DRUGS (2)
  1. METHOTREXATE SODIUM. [Suspect]
     Active Substance: METHOTREXATE SODIUM
     Indication: RHEUMATOID ARTHRITIS
     Dosage: 8 DF, WEEKLY
     Dates: start: 2002, end: 201701
  2. FOLIC ACID. [Concomitant]
     Active Substance: FOLIC ACID
     Indication: INFLAMMATION
     Dosage: 10 MG, DAILY (EXCEPT THE DAY SHE TAKES METHOTREXATE BY MOUTH)
     Route: 048

REACTIONS (5)
  - Weight decreased [Unknown]
  - Drug ineffective [Not Recovered/Not Resolved]
  - Overdose [Unknown]
  - Hepatic enzyme increased [Unknown]
  - Decreased appetite [Unknown]
